FAERS Safety Report 26122812 (Version 1)
Quarter: 2025Q4

REPORT INFORMATION
  Report Type: Spontaneous
  Country: CN (occurrence: CN)
  Receive Date: 20251204
  Receipt Date: 20251204
  Transmission Date: 20260118
  Serious: Yes (Other)
  Sender: NOVARTIS
  Company Number: CN-002147023-NVSC2025CN184455

PATIENT
  Age: 44 Year
  Sex: Male

DRUGS (1)
  1. COSENTYX [Suspect]
     Active Substance: SECUKINUMAB
     Indication: Psoriasis
     Dosage: 300 MG, QMO
     Route: 058
     Dates: start: 20250618, end: 20251112

REACTIONS (5)
  - Otitis media [Recovered/Resolved]
  - Purulent discharge [Recovered/Resolved]
  - Rhinitis [Recovered/Resolved]
  - Rhinorrhoea [Recovered/Resolved]
  - Nasal obstruction [Recovered/Resolved]

NARRATIVE: CASE EVENT DATE: 20251109
